FAERS Safety Report 4602413-1 (Version None)
Quarter: 2005Q1

REPORT INFORMATION
  Report Type: 
  Country: None (occurrence: None)
  Receive Date: 20050307
  Receipt Date: 20050223
  Transmission Date: 20050727
  Serious: Yes (Hospitalization)
  Sender: FDA-Public Use
  Company Number: 05H-163-0291970

PATIENT
  Age: 74 Year
  Sex: Male
  Weight: 70.3 kg

DRUGS (7)
  1. NITROGLYCERIN IN DEXTROSE 5% [Suspect]
     Indication: HYPERTENSION
     Dosage: 216.66 ML
     Dates: start: 20050111, end: 20050112
  2. VICODIN [Suspect]
     Indication: PAIN
     Dosage: 25/2500 MILLIGRAM, ORAL
     Route: 048
     Dates: start: 20050113, end: 20050118
  3. CLOPIDOGREL BISULFATE [Concomitant]
  4. LOSARTAN POTASSIUM [Concomitant]
  5. ACETYLSALICYLIC ACID SRT [Concomitant]
  6. ATORVASTATIN CALCIUM [Concomitant]
  7. LEXAPRO [Concomitant]

REACTIONS (5)
  - CEREBROVASCULAR ACCIDENT [None]
  - LETHARGY [None]
  - MENTAL STATUS CHANGES [None]
  - PNEUMOTHORAX [None]
  - RESPIRATORY FAILURE [None]
